FAERS Safety Report 9015052 (Version 1)
Quarter: 2013Q1

REPORT INFORMATION
  Report Type: Spontaneous
  Country: US (occurrence: US)
  Receive Date: 20130116
  Receipt Date: 20130116
  Transmission Date: 20140127
  Serious: No
  Sender: FDA-Public Use
  Company Number: US-BIOGENIDEC-2012BI058253

PATIENT
  Sex: Female

DRUGS (1)
  1. AVONEX [Suspect]
     Indication: MULTIPLE SCLEROSIS
     Route: 030
     Dates: start: 20120730, end: 20121210

REACTIONS (11)
  - Multiple sclerosis [Unknown]
  - Back pain [Unknown]
  - Paranoia [Unknown]
  - Amnesia [Not Recovered/Not Resolved]
  - Fall [Recovered/Resolved]
  - Balance disorder [Unknown]
  - Stress [Unknown]
  - Headache [Unknown]
  - Pain in extremity [Unknown]
  - Pain [Unknown]
  - Multiple sclerosis relapse [Unknown]
